FAERS Safety Report 14828730 (Version 3)
Quarter: 2018Q2

REPORT INFORMATION
  Report Type: Spontaneous
  Country: US (occurrence: US)
  Receive Date: 20180430
  Receipt Date: 20180529
  Transmission Date: 20180711
  Serious: Yes (Death, Other)
  Sender: FDA-Public Use
  Company Number: US-PFIZER INC-2018176787

PATIENT

DRUGS (9)
  1. PRILOSEC [Suspect]
     Active Substance: OMEPRAZOLE MAGNESIUM
  2. PREVACID 24 HR [Suspect]
     Active Substance: LANSOPRAZOLE
  3. ACIPHEX [Suspect]
     Active Substance: RABEPRAZOLE SODIUM
  4. PREVACID [Suspect]
     Active Substance: LANSOPRAZOLE
  5. NEXIUM 24HR [Suspect]
     Active Substance: ESOMEPRAZOLE MAGNESIUM
  6. PROTONIX [Suspect]
     Active Substance: PANTOPRAZOLE SODIUM
  7. PRILOSEC OTC [Suspect]
     Active Substance: OMEPRAZOLE MAGNESIUM
  8. DEXILANT [Suspect]
     Active Substance: DEXLANSOPRAZOLE
  9. NEXIUM [Suspect]
     Active Substance: ESOMEPRAZOLE MAGNESIUM

REACTIONS (5)
  - End stage renal disease [Unknown]
  - Acute kidney injury [Unknown]
  - Chronic kidney disease [Unknown]
  - Death [Fatal]
  - Tubulointerstitial nephritis [Unknown]
